FAERS Safety Report 12459308 (Version 1)
Quarter: 2016Q2

REPORT INFORMATION
  Report Type: Spontaneous
  Country: FR (occurrence: FR)
  Receive Date: 20160613
  Receipt Date: 20160613
  Transmission Date: 20160815
  Serious: Yes (Hospitalization, Other)
  Sender: FDA-Public Use
  Company Number: FR-GLAXOSMITHKLINE-FR2016GSK082625

PATIENT
  Age: 77 Year
  Sex: Male

DRUGS (19)
  1. ZELITREX [Suspect]
     Active Substance: VALACYCLOVIR HYDROCHLORIDE
     Indication: MARGINAL ZONE LYMPHOMA
     Dosage: UNK UNK, CYC
     Dates: start: 20160308, end: 20160402
  2. CHLORAMINOPHENE [Suspect]
     Active Substance: CHLORAMBUCIL
     Indication: MARGINAL ZONE LYMPHOMA
     Dosage: UNK UNK, CYC
     Route: 048
     Dates: start: 20160308
  3. MABTHERA [Suspect]
     Active Substance: RITUXIMAB
     Dosage: UNK
     Dates: start: 20160322
  4. MABTHERA [Suspect]
     Active Substance: RITUXIMAB
     Dosage: UNK
     Dates: start: 20160330
  5. MABTHERA [Suspect]
     Active Substance: RITUXIMAB
     Dosage: UNK
     Dates: start: 20160315
  6. CHLORAMINOPHENE [Suspect]
     Active Substance: CHLORAMBUCIL
     Dosage: UNK UNK, CYC
     Dates: start: 20160315
  7. DONORMYL [Suspect]
     Active Substance: DOXYLAMINE SUCCINATE
     Indication: PRODUCT USED FOR UNKNOWN INDICATION
     Dosage: UNK
     Route: 048
     Dates: start: 201603, end: 201603
  8. KARDEGIC [Concomitant]
     Active Substance: ASPIRIN LYSINE
  9. ATENOLOL. [Concomitant]
     Active Substance: ATENOLOL
  10. CHLORAMINOPHENE [Suspect]
     Active Substance: CHLORAMBUCIL
     Dosage: UNK, CYC
     Dates: start: 20160322
  11. BACTRIM [Suspect]
     Active Substance: SULFAMETHOXAZOLE\TRIMETHOPRIM
     Indication: PRODUCT USED FOR UNKNOWN INDICATION
     Dosage: UNK
     Route: 048
     Dates: start: 20160308, end: 20160402
  12. PARACETAMOL [Concomitant]
     Active Substance: ACETAMINOPHEN
  13. TRAMADOL. [Concomitant]
     Active Substance: TRAMADOL
  14. CHLORAMINOPHENE [Suspect]
     Active Substance: CHLORAMBUCIL
     Dosage: UNK, CYC
     Dates: start: 20160330
  15. IBUPROFENE [Suspect]
     Active Substance: IBUPROFEN
     Indication: PRODUCT USED FOR UNKNOWN INDICATION
     Dosage: UNK
     Route: 048
     Dates: start: 201603, end: 201603
  16. ALLOPURINOL. [Suspect]
     Active Substance: ALLOPURINOL
     Indication: PRODUCT USED FOR UNKNOWN INDICATION
     Dosage: UNK
     Route: 048
     Dates: start: 20160308, end: 20160402
  17. LISINOPRIL. [Concomitant]
     Active Substance: LISINOPRIL
  18. AMPHOTERICINE B [Suspect]
     Active Substance: AMPHOTERICIN B
     Indication: MARGINAL ZONE LYMPHOMA
     Dosage: UNK
     Dates: start: 20160401, end: 201604
  19. MABTHERA [Suspect]
     Active Substance: RITUXIMAB
     Indication: MARGINAL ZONE LYMPHOMA
     Dosage: UNK
     Route: 042
     Dates: start: 20160308, end: 20160330

REACTIONS (1)
  - Drug reaction with eosinophilia and systemic symptoms [Recovering/Resolving]

NARRATIVE: CASE EVENT DATE: 20160404
